FAERS Safety Report 5060639-X (Version None)
Quarter: 2006Q3

REPORT INFORMATION
  Report Type: 
  Country: None (occurrence: None)
  Receive Date: 20060725
  Receipt Date: 20060718
  Transmission Date: 20061208
  Serious: Yes (Other)
  Sender: FDA-Public Use
  Company Number: US-JNJFOC-20060703652

PATIENT
  Age: 57 Year
  Sex: Male

DRUGS (1)
  1. LEVAQUIN [Suspect]
     Indication: PNEUMONIA

REACTIONS (4)
  - BLINDNESS TRANSIENT [None]
  - ERUCTATION [None]
  - HYPERHIDROSIS [None]
  - HYPOTENSION [None]
